FAERS Safety Report 4533380-7 (Version None)
Quarter: 2004Q4

REPORT INFORMATION
  Report Type: 
  Country: None (occurrence: None)
  Receive Date: 20041221
  Receipt Date: 20041007
  Transmission Date: 20050328
  Serious: Yes (Hospitalization)
  Sender: FDA-Public Use
  Company Number: JP-BRISTOL-MYERS SQUIBB COMPANY-12734596

PATIENT
  Age: 69 Year
  Sex: Female

DRUGS (4)
  1. ENDOXAN [Suspect]
     Indication: BREAST CANCER METASTATIC
     Dosage: CY 2: 22SEP04 CY3:  13OCT04
     Route: 042
     Dates: start: 20040901, end: 20040901
  2. EPIRUBICIN [Suspect]
     Indication: BREAST CANCER METASTATIC
     Dosage: CY 2: 22SEP04 CY 3: 13OCT04
     Route: 042
     Dates: start: 20040901, end: 20040901
  3. DECADRON [Concomitant]
  4. FAMOTIDINE [Concomitant]

REACTIONS (3)
  - BLOOD AMYLASE INCREASED [None]
  - C-REACTIVE PROTEIN INCREASED [None]
  - FEELING ABNORMAL [None]
